FAERS Safety Report 5546776-1 (Version None)
Quarter: 2007Q4

REPORT INFORMATION
  Report Type: 
  Country: None (occurrence: None)
  Receive Date: 20071126
  Receipt Date: 20060915
  Transmission Date: 20080405
  Serious: Yes (Hospitalization, Other)
  Sender: FDA-Public Use
  Company Number: 30680

PATIENT
  Age: 53 Year
  Sex: Female

DRUGS (10)
  1. ADRIAMYCIN PFS [Suspect]
     Indication: BREAST CANCER
     Dosage: 105 MG
     Dates: start: 20060825
  2. CELEBREX [Concomitant]
  3. LORTAB [Concomitant]
  4. DECADRON [Concomitant]
  5. EMEND [Concomitant]
  6. COUMADIN [Concomitant]
  7. COMPAZINE [Concomitant]
  8. ATIVAN [Concomitant]
  9. LEVAQUIN [Concomitant]
  10. MAGIC MOUTHWASH [Concomitant]

REACTIONS (1)
  - FEBRILE NEUTROPENIA [None]
